FAERS Safety Report 24454196 (Version 2)
Quarter: 2024Q4

REPORT INFORMATION
  Report Type: Spontaneous
  Country: US (occurrence: US)
  Receive Date: 20241017
  Receipt Date: 20241018
  Transmission Date: 20250114
  Serious: No
  Sender: ROCHE
  Company Number: US-ROCHE-3463166

PATIENT
  Age: 87 Year
  Sex: Male

DRUGS (10)
  1. RITUXIMAB [Suspect]
     Active Substance: RITUXIMAB
     Indication: Granulomatosis with polyangiitis
     Route: 065
  2. CELLCEPT [Suspect]
     Active Substance: MYCOPHENOLATE MOFETIL
     Indication: Granulomatosis with polyangiitis
     Route: 065
  3. PREDNISONE [Suspect]
     Active Substance: PREDNISONE
     Indication: Granulomatosis with polyangiitis
     Route: 065
  4. APIXABAN [Concomitant]
     Active Substance: APIXABAN
  5. AMPICILLIN [Concomitant]
     Active Substance: AMPICILLIN
     Route: 042
  6. SULBACTAM [Concomitant]
     Active Substance: SULBACTAM
     Route: 042
  7. AMOXICILLIN [Concomitant]
     Active Substance: AMOXICILLIN
  8. CLAVULANATE POTASSIUM [Concomitant]
     Active Substance: CLAVULANATE POTASSIUM
  9. KEFLEX [Concomitant]
     Active Substance: CEPHALEXIN
  10. FLONASE [Concomitant]
     Active Substance: FLUTICASONE PROPIONATE

REACTIONS (5)
  - Fungal infection [Unknown]
  - Chronic sinusitis [Unknown]
  - Cellulitis [Unknown]
  - Staphylococcal infection [Unknown]
  - Staphylococcal infection [Recovered/Resolved]
